FAERS Safety Report 10551031 (Version 1)
Quarter: 2014Q4

REPORT INFORMATION
  Report Type: Spontaneous
  Country: US (occurrence: None)
  Receive Date: 20141028
  Receipt Date: 20141028
  Transmission Date: 20150529
  Serious: Yes (Other)
  Sender: FDA-Public Use
  Company Number: None

PATIENT
  Age: 36 Year
  Sex: Female

DRUGS (1)
  1. INVEGA [Suspect]
     Active Substance: PALIPERIDONE

REACTIONS (4)
  - Salivary hypersecretion [None]
  - Somnolence [None]
  - Sedation [None]
  - Fatigue [None]

NARRATIVE: CASE EVENT DATE: 20141008
